FAERS Safety Report 8423898-9 (Version None)
Quarter: 2012Q2

REPORT INFORMATION
  Report Type: 
  Country: None (occurrence: None)
  Receive Date: 20120608
  Receipt Date: 20120530
  Transmission Date: 20120825
  Serious: Yes (Other)
  Sender: FDA-Public Use
  Company Number: US-US-EMD SERONO, INC.-7120692

PATIENT
  Sex: Female
  Weight: 64 kg

DRUGS (4)
  1. ATIVAN [Concomitant]
     Indication: ANXIETY
  2. FOSAMAX [Concomitant]
     Indication: OSTEOPOROSIS
  3. XANAX [Concomitant]
     Indication: ANXIOLYTIC THERAPY
  4. REBIF [Suspect]
     Indication: MULTIPLE SCLEROSIS
     Route: 058
     Dates: start: 20070910

REACTIONS (13)
  - RENAL CYST [None]
  - HEPATIC CYST [None]
  - INJECTION SITE PAIN [None]
  - NEPHROLITHIASIS [None]
  - RESTLESS LEGS SYNDROME [None]
  - DEPRESSION [None]
  - EYE PAIN [None]
  - MONARTHRITIS [None]
  - INSOMNIA [None]
  - EAR PAIN [None]
  - EMOTIONAL DISTRESS [None]
  - HEPATIC MASS [None]
  - LYMPHADENOPATHY [None]
